FAERS Safety Report 8466752-9 (Version None)
Quarter: 2012Q2

REPORT INFORMATION
  Report Type: 
  Country: None (occurrence: None)
  Receive Date: 20120626
  Receipt Date: 20120622
  Transmission Date: 20120825
  Serious: No
  Sender: FDA-Public Use
  Company Number: US-PFIZER INC-2012151015

PATIENT
  Sex: Female

DRUGS (3)
  1. LYRICA [Suspect]
     Indication: FIBROMYALGIA
     Dosage: 50 MG, 3X/DAY
     Route: 048
     Dates: start: 20120501
  2. LYRICA [Suspect]
     Indication: SPINAL OSTEOARTHRITIS
  3. LYRICA [Suspect]
     Indication: DIABETIC NEUROPATHY

REACTIONS (5)
  - FATIGUE [None]
  - SOMNOLENCE [None]
  - DISTURBANCE IN ATTENTION [None]
  - THINKING ABNORMAL [None]
  - VISION BLURRED [None]
